FAERS Safety Report 4670055-8 (Version None)
Quarter: 2005Q2

REPORT INFORMATION
  Report Type: 
  Country: None (occurrence: None)
  Receive Date: 20050523
  Receipt Date: 20050505
  Transmission Date: 20051028
  Serious: Yes (Other)
  Sender: FDA-Public Use
  Company Number: IMP_0854_2005

PATIENT
  Age: 49 Year
  Sex: Female

DRUGS (6)
  1. BUPROPION HCL [Suspect]
     Indication: DEPRESSIVE SYMPTOM
     Dosage: 100 MG DAILY PO
     Route: 048
     Dates: start: 20010601
  2. BUPROPION HCL [Suspect]
     Indication: DEPRESSIVE SYMPTOM
     Dosage: 100 MG QAM PO
     Route: 048
     Dates: start: 20020501, end: 20030201
  3. BUPROPION HCL [Suspect]
     Indication: DEPRESSIVE SYMPTOM
     Dosage: 200 MG BID PO
     Route: 048
     Dates: start: 20030201, end: 20030403
  4. BUPROPION HCL [Suspect]
     Indication: DEPRESSIVE SYMPTOM
     Dosage: 100 MG QAM PO
     Route: 048
     Dates: start: 20030604, end: 20030624
  5. DIVALPROEX SODIUM [Suspect]
     Indication: MOOD ALTERED
  6. OXYCARBAZEPINE [Suspect]
     Indication: MOOD ALTERED
     Dosage: 900 MG QDAY PO
     Route: 048
     Dates: start: 20020501

REACTIONS (8)
  - ABDOMINAL PAIN [None]
  - CONDITION AGGRAVATED [None]
  - DEPRESSION [None]
  - DIZZINESS [None]
  - INAPPROPRIATE ANTIDIURETIC HORMONE SECRETION [None]
  - IRRITABLE BOWEL SYNDROME [None]
  - ORTHOSTATIC HYPOTENSION [None]
  - TREMOR [None]
